FAERS Safety Report 5568214-5 (Version None)
Quarter: 2007Q4

REPORT INFORMATION
  Report Type: 
  Country: None (occurrence: None)
  Receive Date: 20071220
  Receipt Date: 20071211
  Transmission Date: 20080405
  Serious: Yes (Other)
  Sender: FDA-Public Use
  Company Number: JP-WYE-H01668007

PATIENT
  Age: 49 Year
  Sex: Female

DRUGS (1)
  1. TRIQUILAR-21 [Suspect]
     Indication: ORAL CONTRACEPTION
     Route: 048
     Dates: start: 19970501, end: 20070801

REACTIONS (4)
  - CARDIAC HYPERTROPHY [None]
  - CHOKING SENSATION [None]
  - PULMONARY HYPERTENSION [None]
  - THROMBOSIS [None]
